FAERS Safety Report 23584173 (Version 6)
Quarter: 2024Q2

REPORT INFORMATION
  Report Type: Report from Study
  Country: US (occurrence: US)
  Receive Date: 20240301
  Receipt Date: 20240530
  Transmission Date: 20240716
  Serious: Yes (Other)
  Sender: FDA-Public Use
  Company Number: US-002147023-NVSC2023US117270

PATIENT
  Age: 9 Year
  Sex: Male
  Weight: 38.3 kg

DRUGS (3)
  1. KISQALI [Suspect]
     Active Substance: RIBOCICLIB
     Indication: Glioblastoma multiforme
     Dosage: 150 MG (3 CAPSULES BY MOUTH FOR 24 HOURS FOR 40 DAYS. TAKE ONCE DAILY FOR 21 DAYS OF EACH 28 DAY CYC
     Route: 048
     Dates: start: 20230320
  2. KISQALI [Suspect]
     Active Substance: RIBOCICLIB
     Dosage: 150 MG
     Route: 048
     Dates: start: 20230320
  3. EVEROLIMUS [Concomitant]
     Active Substance: EVEROLIMUS
     Indication: Product used for unknown indication
     Dosage: 1 MG BY MOUTH DAILY AND ONE 0.5 MG  TABLET FOR A TOTAL DAILY DOSE OF 1.5 MG
     Route: 048

REACTIONS (35)
  - Neutropenia [Recovered/Resolved]
  - Leukopenia [Not Recovered/Not Resolved]
  - Brain neoplasm [Not Recovered/Not Resolved]
  - Mucosal inflammation [Not Recovered/Not Resolved]
  - Mucosal inflammation [Recovered/Resolved]
  - Gingival pain [Unknown]
  - White blood cell count decreased [Recovered/Resolved]
  - Stomatitis [Recovered/Resolved]
  - Hypercholesterolaemia [Not Recovered/Not Resolved]
  - Normocytic anaemia [Not Recovered/Not Resolved]
  - Neutrophil count decreased [Recovered/Resolved]
  - Neutrophil count decreased [Not Recovered/Not Resolved]
  - Blood triglycerides increased [Recovering/Resolving]
  - Non-high-density lipoprotein cholesterol increased [Recovering/Resolving]
  - Diarrhoea [Not Recovered/Not Resolved]
  - Gastroenteritis viral [Not Recovered/Not Resolved]
  - Gastrointestinal toxicity [Not Recovered/Not Resolved]
  - Diarrhoea [Recovered/Resolved]
  - Pyrexia [Recovered/Resolved]
  - Nausea [Recovered/Resolved]
  - Vomiting [Recovered/Resolved]
  - Abdominal pain [Recovered/Resolved]
  - Pyrexia [Recovered/Resolved]
  - Blood cholesterol increased [Recovering/Resolving]
  - Skin fissures [Recovered/Resolved]
  - Thermal burn [Recovered/Resolved]
  - Abdominal pain [Recovered/Resolved]
  - Nasopharyngitis [Unknown]
  - Sneezing [Recovered/Resolved]
  - Rhinorrhoea [Recovered/Resolved]
  - Cough [Recovering/Resolving]
  - Pyrexia [Recovered/Resolved]
  - Headache [Recovered/Resolved]
  - Skin lesion [Not Recovered/Not Resolved]
  - Anaemia [Not Recovered/Not Resolved]

NARRATIVE: CASE EVENT DATE: 20230421
